FAERS Safety Report 6874557-5 (Version None)
Quarter: 2010Q3

REPORT INFORMATION
  Report Type: 
  Country: None (occurrence: None)
  Receive Date: 20100722
  Receipt Date: 20100715
  Transmission Date: 20110219
  Serious: Yes (Hospitalization, Other)
  Sender: FDA-Public Use
  Company Number: 20108660

PATIENT
  Sex: Male

DRUGS (1)
  1. LIORESAL [Suspect]
     Indication: MUSCLE SPASTICITY
     Dosage: 325 MCG, DAILY,  INTRATHECAL - SEE B
     Route: 037

REACTIONS (8)
  - CONDITION AGGRAVATED [None]
  - DISCOMFORT [None]
  - IMPLANT SITE EFFUSION [None]
  - MUSCLE RIGIDITY [None]
  - MUSCLE SPASTICITY [None]
  - PRURITUS [None]
  - SCOLIOSIS [None]
  - WITHDRAWAL SYNDROME [None]
